FAERS Safety Report 4503057-2 (Version None)
Quarter: 2004Q4

REPORT INFORMATION
  Report Type: 
  Country: None (occurrence: None)
  Receive Date: 20041116
  Receipt Date: 20041116
  Transmission Date: 20050328
  Serious: Yes (Life-Threatening, Hospitalization)
  Sender: FDA-Public Use
  Company Number: None

PATIENT
  Sex: Female

DRUGS (12)
  1. LISINOPRIL [Suspect]
     Indication: HYPERTENSION
     Dosage: 10MG PO DAILY
     Route: 048
     Dates: start: 20040817
  2. LISINOPRIL [Suspect]
     Indication: HYPERTENSION
     Dosage: 10MG PO DAILY
     Route: 048
     Dates: start: 20040930
  3. PRILOSEC [Concomitant]
  4. ESTRACE [Concomitant]
  5. ATENOLOL [Concomitant]
  6. HYDROCHLOROTHIAZIDE [Concomitant]
  7. ATROVENT [Concomitant]
  8. ALBUTEROL [Concomitant]
  9. FLONASE [Concomitant]
  10. NITROGLYCERIN [Concomitant]
  11. CLARITIN [Concomitant]
  12. DITROPAN [Concomitant]

REACTIONS (4)
  - DYSPNOEA [None]
  - LOCAL SWELLING [None]
  - SWELLING FACE [None]
  - SWOLLEN TONGUE [None]
